FAERS Safety Report 15798839 (Version 2)
Quarter: 2019Q1

REPORT INFORMATION
  Report Type: Spontaneous
  Country: US (occurrence: US)
  Receive Date: 20190108
  Receipt Date: 20190123
  Transmission Date: 20190417
  Serious: No
  Sender: FDA-Public Use
  Company Number: US-SA-2019SA004492

PATIENT
  Age: 67 Year
  Sex: Male

DRUGS (2)
  1. NOVOLOG [Suspect]
     Active Substance: INSULIN ASPART
     Route: 065
  2. LANTUS SOLOSTAR [Suspect]
     Active Substance: INSULIN GLARGINE
     Indication: TYPE 2 DIABETES MELLITUS
     Dosage: 36 UNITS/5 UNITS,MORNING AND NIGHT
     Route: 065

REACTIONS (3)
  - Inappropriate schedule of product administration [Unknown]
  - Blood glucose increased [Unknown]
  - Device leakage [Unknown]
